FAERS Safety Report 19867117 (Version 1)
Quarter: 2021Q3

REPORT INFORMATION
  Report Type: Spontaneous
  Country: US (occurrence: US)
  Receive Date: 20210921
  Receipt Date: 20210921
  Transmission Date: 20211014
  Serious: No
  Sender: FDA-Public Use
  Company Number: US-BRAINTREE LABORATORIES, INC.-2020BTE04926

PATIENT
  Age: 74 Year
  Sex: Female
  Weight: 81.65 kg

DRUGS (6)
  1. PERCOCET [Concomitant]
     Active Substance: ACETAMINOPHEN\OXYCODONE HYDROCHLORIDE
  2. SUPREP BOWEL PREP [Suspect]
     Active Substance: MAGNESIUM SULFATE\POTASSIUM SULFATE\SODIUM SULFATE
     Indication: COLONOSCOPY
     Dosage: 1 DOSAGE UNITS, 1X
     Route: 048
     Dates: start: 20201221, end: 20201221
  3. SYNTHROID [Concomitant]
     Active Substance: LEVOTHYROXINE SODIUM
  4. MS CONTIN [Concomitant]
     Active Substance: MORPHINE SULFATE
  5. ZETIA [Concomitant]
     Active Substance: EZETIMIBE
  6. TRAZODONE [Concomitant]
     Active Substance: TRAZODONE HYDROCHLORIDE

REACTIONS (3)
  - Nausea [Recovered/Resolved]
  - Vomiting projectile [Recovered/Resolved]
  - Discoloured vomit [Recovered/Resolved]

NARRATIVE: CASE EVENT DATE: 20201221
